FAERS Safety Report 7658533-0 (Version None)
Quarter: 2011Q3

REPORT INFORMATION
  Report Type: 
  Country: None (occurrence: None)
  Receive Date: 20110805
  Receipt Date: 20110721
  Transmission Date: 20111222
  Serious: Yes (Other)
  Sender: FDA-Public Use
  Company Number: US-ELI_LILLY_AND_COMPANY-US201010001019

PATIENT
  Sex: Female

DRUGS (2)
  1. FORTEO [Suspect]
     Indication: OSTEOPOROSIS
     Dosage: UNK, UNKNOWN
     Route: 065
     Dates: start: 20100608
  2. ASPIRIN [Concomitant]

REACTIONS (8)
  - SPEECH DISORDER [None]
  - DYSPHONIA [None]
  - TRANSIENT ISCHAEMIC ATTACK [None]
  - OROPHARYNGEAL PAIN [None]
  - CEREBROVASCULAR ACCIDENT [None]
  - PAIN [None]
  - MUSCLE SPASMS [None]
  - ABDOMINAL DISCOMFORT [None]
